FAERS Safety Report 15160359 (Version 7)
Quarter: 2022Q1

REPORT INFORMATION
  Report Type: Spontaneous
  Country: NL (occurrence: NL)
  Receive Date: 20180718
  Receipt Date: 20220310
  Transmission Date: 20220424
  Serious: Yes (Death, Other)
  Sender: FDA-Public Use
  Company Number: PHHY2018NL044265

PATIENT
  Age: 77 Year
  Sex: Male

DRUGS (16)
  1. RIFAMPIN [Suspect]
     Active Substance: RIFAMPIN
     Indication: Disseminated Bacillus Calmette-Guerin infection
     Dosage: 600 MG, QD
     Route: 065
  2. RIFAMPIN [Suspect]
     Active Substance: RIFAMPIN
     Indication: Pneumonia
  3. RIFAMPIN [Suspect]
     Active Substance: RIFAMPIN
     Indication: Hepatitis A
  4. RIFAMPIN [Suspect]
     Active Substance: RIFAMPIN
     Indication: Hepatotoxicity
  5. ISONIAZID [Suspect]
     Active Substance: ISONIAZID
     Indication: Disseminated Bacillus Calmette-Guerin infection
     Dosage: 300 MG, QD
     Route: 065
  6. ISONIAZID [Suspect]
     Active Substance: ISONIAZID
     Indication: Pneumonia
  7. ISONIAZID [Suspect]
     Active Substance: ISONIAZID
     Indication: Hepatitis A
  8. ISONIAZID [Suspect]
     Active Substance: ISONIAZID
     Indication: Hepatotoxicity
  9. ETHAMBUTOL [Suspect]
     Active Substance: ETHAMBUTOL HYDROCHLORIDE
     Indication: Disseminated Bacillus Calmette-Guerin infection
     Dosage: 1600 MG, QD
     Route: 065
  10. ETHAMBUTOL [Suspect]
     Active Substance: ETHAMBUTOL HYDROCHLORIDE
     Indication: Hepatotoxicity
  11. ETHAMBUTOL [Suspect]
     Active Substance: ETHAMBUTOL HYDROCHLORIDE
     Indication: Pneumonia
  12. ETHAMBUTOL [Suspect]
     Active Substance: ETHAMBUTOL HYDROCHLORIDE
     Indication: Hepatitis A
  13. BCG VACCINE [Suspect]
     Active Substance: BCG VACCINE
     Indication: Bladder cancer
     Dosage: UNK (A TOTAL OF 59 TRAUMATIC INSTILLATIONS)
     Route: 043
  14. PREDNISONE [Concomitant]
     Active Substance: PREDNISONE
     Indication: Pneumonia
     Dosage: 20 MG, QD
     Route: 065
  15. PREDNISONE [Concomitant]
     Active Substance: PREDNISONE
     Indication: Hepatitis A
  16. PREDNISONE [Concomitant]
     Active Substance: PREDNISONE
     Indication: Disseminated Bacillus Calmette-Guerin infection

REACTIONS (9)
  - Hepatitis [Fatal]
  - Metastasis [Fatal]
  - Hilar lymphadenopathy [Recovered/Resolved]
  - Hepatotoxicity [Recovered/Resolved]
  - Pneumonitis [Recovered/Resolved]
  - Pyrexia [Recovered/Resolved]
  - Cough [Recovered/Resolved]
  - Dyspnoea [Recovered/Resolved]
  - Drug ineffective [Unknown]
